FAERS Safety Report 24349352 (Version 1)
Quarter: 2024Q3

REPORT INFORMATION
  Report Type: Spontaneous
  Country: US (occurrence: US)
  Receive Date: 20240923
  Receipt Date: 20240923
  Transmission Date: 20241016
  Serious: No
  Sender: NOBELPHARMA
  Company Number: US-Nobelpharma America, LLC-NPA-2024-01627

PATIENT
  Age: 6 Year
  Sex: Male

DRUGS (1)
  1. HYFTOR [Suspect]
     Active Substance: SIROLIMUS
     Indication: Tuberous sclerosis complex
     Dosage: ONCE A DAY, TWICE A DAY DURING SUMMER
     Route: 003
     Dates: start: 20230926

REACTIONS (3)
  - Eye pruritus [Unknown]
  - Rash [Unknown]
  - Intentional product use issue [None]

NARRATIVE: CASE EVENT DATE: 20230901
